FAERS Safety Report 10234937 (Version 1)
Quarter: 2014Q2

REPORT INFORMATION
  Report Type: Spontaneous
  Country: US (occurrence: None)
  Receive Date: 20140520
  Receipt Date: 20140520
  Transmission Date: 20141212
  Serious: Yes (Life-Threatening, Hospitalization, Other)
  Sender: FDA-Public Use
  Company Number: 2013PL000215

PATIENT
  Age: 18 Year
  Sex: Female
  Weight: 62.1 kg

DRUGS (5)
  1. AZATHIOPRINE (AZATHIOPRINE) [Suspect]
     Indication: PRODUCT USED FOR UNKNOWN INDICATION
     Dates: start: 201212, end: 201309
  2. REMICADE (INFLIXIMAB) [Suspect]
     Indication: CROHN^S DISEASE
     Route: 042
     Dates: start: 20121229, end: 20130803
  3. VITAMIN D (ERGOCALCIFEROL) [Concomitant]
  4. JOLIVETTE-28 (NORETHISTERONE) [Concomitant]
  5. LINZESS (LINACLOTIDE) [Concomitant]

REACTIONS (1)
  - Hodgkin^s disease [None]
